FAERS Safety Report 24202138 (Version 1)
Quarter: 2024Q3

REPORT INFORMATION
  Report Type: Spontaneous
  Country: US (occurrence: US)
  Receive Date: 20240812
  Receipt Date: 20240812
  Transmission Date: 20241016
  Serious: No
  Sender: SUNOVION
  Company Number: US-SMPA-2024SPA000730AA

PATIENT

DRUGS (1)
  1. APTIOM [Suspect]
     Active Substance: ESLICARBAZEPINE ACETATE
     Indication: Seizure
     Dosage: 1200 MG (800 MG AND 400 MG BOTH IN THE MORNING), QD
     Route: 048

REACTIONS (2)
  - Road traffic accident [Unknown]
  - Therapy interrupted [Unknown]
